FAERS Safety Report 5326514-8 (Version None)
Quarter: 2007Q2

REPORT INFORMATION
  Report Type: 
  Country: None (occurrence: None)
  Receive Date: 20070516
  Receipt Date: 20070510
  Transmission Date: 20071010
  Serious: Yes (Hospitalization, Disabling)
  Sender: FDA-Public Use
  Company Number: BR-ABBOTT-05P-020-0299290-00

PATIENT
  Sex: Male

DRUGS (13)
  1. RITONAVIR SOFT GELATIN CAPSULES [Suspect]
     Indication: HIV INFECTION
     Route: 048
     Dates: start: 20031015
  2. TIPRANAVIR [Concomitant]
     Indication: HIV INFECTION
     Route: 048
     Dates: start: 20031015
  3. TENOFOVIR [Concomitant]
     Indication: HIV INFECTION
  4. RITONAVIR [Concomitant]
     Indication: HIV INFECTION
  5. OLANZAPINE [Concomitant]
     Indication: HIV INFECTION
  6. DIDANOSINE [Concomitant]
     Indication: HIV INFECTION
  7. VIREAD [Concomitant]
     Indication: HIV INFECTION
  8. ABACAVIR [Concomitant]
     Indication: HIV INFECTION
  9. FLUCONAZOLE [Concomitant]
     Indication: HIV INFECTION
  10. PRAVASTATIN [Concomitant]
     Indication: HIV INFECTION
  11. AZITHROMYCIN [Concomitant]
     Indication: HIV INFECTION
  12. BACTRIM [Concomitant]
     Indication: HIV INFECTION
  13. ABACAVIR SULFATE [Concomitant]
     Indication: HIV INFECTION

REACTIONS (9)
  - BRAIN MASS [None]
  - CEREBRAL TOXOPLASMOSIS [None]
  - DIZZINESS [None]
  - HYPERHIDROSIS [None]
  - NERVOUS SYSTEM DISORDER [None]
  - PYREXIA [None]
  - SOMNOLENCE [None]
  - VOMITING [None]
  - WEIGHT DECREASED [None]
